FAERS Safety Report 5310659-2 (Version None)
Quarter: 2007Q2

REPORT INFORMATION
  Report Type: 
  Country: None (occurrence: None)
  Receive Date: 20070428
  Receipt Date: 20070416
  Transmission Date: 20071010
  Serious: Yes (Hospitalization, Other)
  Sender: FDA-Public Use
  Company Number: CA-PFIZER INC-2007031459

PATIENT
  Age: 22 Year
  Sex: Female

DRUGS (1)
  1. DEMULEN 1/35-28 [Suspect]
     Route: 048
     Dates: end: 20070401

REACTIONS (2)
  - BILE DUCT STONE [None]
  - PANCREATITIS [None]
